FAERS Safety Report 20140644 (Version 1)
Quarter: 2021Q4

REPORT INFORMATION
  Report Type: Other
  Country: DE (occurrence: DE)
  Receive Date: 20211202
  Receipt Date: 20211202
  Transmission Date: 20220304
  Serious: Yes (Hospitalization)
  Sender: FDA-Public Use
  Company Number: DE-COLLEGIUM PHARMACEUTICAL, INC.-2021CGM01247

PATIENT
  Age: 69 Year
  Sex: Female
  Weight: 165 kg

DRUGS (1)
  1. TAPENTADOL [Suspect]
     Active Substance: TAPENTADOL
     Indication: Pain
     Dosage: 2 DOSAGE FORM EVERY DAYS 2 SEPARATED DOSES
     Dates: start: 202010, end: 202103

REACTIONS (2)
  - Dyspnoea [Not Recovered/Not Resolved]
  - Lymphoedema [Not Recovered/Not Resolved]

NARRATIVE: CASE EVENT DATE: 20201001
